FAERS Safety Report 21111027 (Version 2)
Quarter: 2022Q3

REPORT INFORMATION
  Report Type: Report from Study
  Country: BR (occurrence: BR)
  Receive Date: 20220721
  Receipt Date: 20220914
  Transmission Date: 20221027
  Serious: Yes (Hospitalization)
  Sender: FDA-Public Use
  Company Number: BR-JNJFOC-20220731849

PATIENT
  Age: 59 Year
  Sex: Male
  Weight: 93 kg

DRUGS (1)
  1. INFLIXIMAB [Suspect]
     Active Substance: INFLIXIMAB
     Indication: Psoriatic arthropathy
     Dosage: VIALS?TREATMENT START DATE: 22/AUG/2018, ALSO REPORTED 02-MAR-2018 (ACCORDING TO PSP DATA).
     Route: 041
     Dates: start: 2018, end: 20220517

REACTIONS (2)
  - COVID-19 [Unknown]
  - Memory impairment [Unknown]

NARRATIVE: CASE EVENT DATE: 20210101
